FAERS Safety Report 4608516-X (Version None)
Quarter: 2005Q1

REPORT INFORMATION
  Report Type: 
  Country: None (occurrence: None)
  Receive Date: 20050315
  Receipt Date: 20050308
  Transmission Date: 20050727
  Serious: Yes (Hospitalization)
  Sender: FDA-Public Use
  Company Number: AU-BRISTOL-MYERS SQUIBB COMPANY-12890257

PATIENT
  Age: 51 Year
  Sex: Male

DRUGS (4)
  1. IFOSFAMIDE [Suspect]
     Indication: NON-HODGKIN'S LYMPHOMA
     Dates: start: 20050107
  2. GEMZAR [Suspect]
     Indication: NON-HODGKIN'S LYMPHOMA
     Route: 042
     Dates: start: 20050107
  3. VINORELBINE [Suspect]
     Indication: NON-HODGKIN'S LYMPHOMA
     Dates: start: 20050107
  4. PEGFILGRASTIM [Suspect]
     Indication: NON-HODGKIN'S LYMPHOMA
     Dates: start: 20050115

REACTIONS (3)
  - ABDOMINAL PAIN [None]
  - ENTEROBACTER SEPSIS [None]
  - FEBRILE NEUTROPENIA [None]
